FAERS Safety Report 16356281 (Version 14)
Quarter: 2024Q1

REPORT INFORMATION
  Report Type: Report from Study
  Country: DE (occurrence: DE)
  Receive Date: 20190527
  Receipt Date: 20240311
  Transmission Date: 20240410
  Serious: Yes (Hospitalization)
  Sender: FDA-Public Use
  Company Number: DE-ABBVIE-19K-062-2745932-00

PATIENT
  Age: 70 Year
  Sex: Female
  Weight: 66 kg

DRUGS (13)
  1. VENETOCLAX [Suspect]
     Active Substance: VENETOCLAX
     Indication: Chronic lymphocytic leukaemia
     Route: 048
     Dates: start: 20190122, end: 20190128
  2. VENETOCLAX [Suspect]
     Active Substance: VENETOCLAX
     Indication: Chronic lymphocytic leukaemia
     Route: 048
     Dates: start: 20190129, end: 20190204
  3. VENETOCLAX [Suspect]
     Active Substance: VENETOCLAX
     Indication: Chronic lymphocytic leukaemia
     Route: 048
     Dates: start: 20190205, end: 20190218
  4. VENETOCLAX [Suspect]
     Active Substance: VENETOCLAX
     Indication: Chronic lymphocytic leukaemia
     Route: 048
     Dates: start: 20190219, end: 20190225
  5. VENETOCLAX [Suspect]
     Active Substance: VENETOCLAX
     Indication: Chronic lymphocytic leukaemia
     Route: 048
     Dates: start: 20190226, end: 20190304
  6. VENETOCLAX [Suspect]
     Active Substance: VENETOCLAX
     Indication: Chronic lymphocytic leukaemia
     Route: 048
     Dates: start: 20190305, end: 20190520
  7. VENETOCLAX [Suspect]
     Active Substance: VENETOCLAX
     Indication: Chronic lymphocytic leukaemia
     Route: 048
     Dates: start: 20190521, end: 20210226
  8. PAROXETINE HYDROCHLORIDE [Concomitant]
     Active Substance: PAROXETINE HYDROCHLORIDE\PAROXETINE HYDROCHLORIDE ANHYDROUS
     Indication: Product used for unknown indication
     Route: 048
     Dates: end: 20190611
  9. IODINE [Concomitant]
     Active Substance: IODINE
     Indication: Product used for unknown indication
     Route: 048
     Dates: end: 20190611
  10. Paracodin [Concomitant]
     Indication: Product used for unknown indication
     Dosage: DROPS
     Route: 048
     Dates: end: 20190128
  11. Paracodin [Concomitant]
     Indication: Product used for unknown indication
     Dosage: DROPS AS REQUIRED
     Route: 048
     Dates: start: 20190128
  12. BUTYLSCOPOLAMINE BROMIDE [Concomitant]
     Active Substance: BUTYLSCOPOLAMINE BROMIDE
     Indication: Product used for unknown indication
     Route: 048
     Dates: start: 20190128, end: 20190128
  13. LEVOTHYROXINE SODIUM [Concomitant]
     Active Substance: LEVOTHYROXINE SODIUM
     Indication: Product used for unknown indication
     Route: 048
     Dates: end: 20190516

REACTIONS (17)
  - Herpes simplex encephalitis [Recovered/Resolved]
  - Herpes simplex encephalitis [Recovered/Resolved]
  - Aphasia [Unknown]
  - Anxiety [Recovered/Resolved]
  - Transient ischaemic attack [Unknown]
  - Herpes simplex encephalitis [Unknown]
  - Confusional state [Recovered/Resolved]
  - Night sweats [Recovered/Resolved]
  - Infection [Recovered/Resolved]
  - Limb discomfort [Unknown]
  - Muscular weakness [Unknown]
  - Joint range of motion decreased [Recovered/Resolved]
  - Pain [Recovering/Resolving]
  - Cystitis [Recovered/Resolved]
  - Neutropenia [Recovered/Resolved]
  - Memory impairment [Unknown]
  - Neutropenia [Not Recovered/Not Resolved]

NARRATIVE: CASE EVENT DATE: 20190212
